FAERS Safety Report 10048393 (Version 1)
Quarter: 2014Q1

REPORT INFORMATION
  Report Type: Spontaneous
  Country: US (occurrence: None)
  Receive Date: 20140306
  Receipt Date: 20140306
  Transmission Date: 20141002
  Serious: Yes (Other)
  Sender: FDA-Public Use
  Company Number: 163-21880-12051374

PATIENT
  Age: 62 Year
  Sex: Male

DRUGS (5)
  1. REVLIMID (LENALIDOMIDE) (10 MILLIGRAM, CAPSULES) [Suspect]
     Indication: PLASMA CELL MYELOMA
     Route: 048
     Dates: start: 20120214
  2. ALEVE (NAPROXEN SODIUM) [Concomitant]
  3. DEXAMETHASONE (DEXAMETHASONE) (TABLETS) [Concomitant]
  4. ASA (ACETYLSALICYLIC ACID) (TABLETS) [Concomitant]
  5. LYRICA (PREGABALIN) (CAPSULES) [Concomitant]

REACTIONS (5)
  - Back pain [None]
  - Abdominal pain upper [None]
  - Influenza like illness [None]
  - Lung disorder [None]
  - Rash [None]
